FAERS Safety Report 6204305-3 (Version None)
Quarter: 2009Q2

REPORT INFORMATION
  Report Type: 
  Country: None (occurrence: None)
  Receive Date: 20090518
  Receipt Date: 20090305
  Transmission Date: 20091009
  Serious: No
  Sender: FDA-Public Use
  Company Number: WAES 0901USA01169

PATIENT
  Age: 63 Year
  Sex: Male
  Weight: 104.3273 kg

DRUGS (11)
  1. JANUVIA [Suspect]
     Indication: DIABETES MELLITUS
     Dosage: 100 MG/DAILY/PO
     Route: 048
     Dates: start: 20081223, end: 20090109
  2. ACTOS [Concomitant]
  3. BACTROBAN [Concomitant]
  4. LIPITOR [Concomitant]
  5. PREVACID [Concomitant]
  6. TRANDATE [Concomitant]
  7. VIAGRA [Concomitant]
  8. ASPIRIN [Concomitant]
  9. LISINOPRIL [Concomitant]
  10. METFORMIN HYDROCHLORIDE [Concomitant]
  11. OXYGEN [Concomitant]

REACTIONS (4)
  - COUGH [None]
  - PAIN [None]
  - RHINORRHOEA [None]
  - UPPER RESPIRATORY TRACT INFECTION [None]
